FAERS Safety Report 5588104-1 (Version None)
Quarter: 2008Q1

REPORT INFORMATION
  Report Type: 
  Country: None (occurrence: None)
  Receive Date: 20080111
  Receipt Date: 20080102
  Transmission Date: 20080703
  Serious: Yes (Other)
  Sender: FDA-Public Use
  Company Number: US-ROCHE-539302

PATIENT
  Age: 60 Year
  Sex: Male

DRUGS (10)
  1. TAMIFLU [Suspect]
     Route: 048
     Dates: start: 20071231, end: 20080102
  2. TYLENOL [Concomitant]
  3. BACTROBAN [Concomitant]
     Dosage: STRENGTH-2% CREAM
  4. ROCEPHIN [Concomitant]
     Dosage: 1 DOSE STARTED ON 2 JANUARY 2009.
     Route: 030
  5. DIAZEPAM [Concomitant]
     Route: 030
  6. SULFACETAMIDE [Concomitant]
     Dosage: EYE DROPS, 1DROP BOTH EYES THRICE DAILY.
  7. TERAZOSIN HCL [Concomitant]
     Dosage: AT BEDTIME.
  8. 1 CONCOMITANT DRUG [Concomitant]
     Dosage: DRUG: TRAVODONE
  9. 1 CONCOMITANT DRUG [Concomitant]
     Dosage: DRUG :TRAVADONE, FIRST THERAPY- 25 MG TWICE DAILY. SECOND THERAPY: 25 MG PRN
  10. VALPROIC ACID [Concomitant]

REACTIONS (1)
  - CONVULSION [None]
